FAERS Safety Report 9129025 (Version 1)
Quarter: 2013Q1

REPORT INFORMATION
  Report Type: Spontaneous
  Country: US (occurrence: US)
  Receive Date: 20130228
  Receipt Date: 20130228
  Transmission Date: 20140127
  Serious: No
  Sender: FDA-Public Use
  Company Number: US-ABBOTT-13P-163-1033425-00

PATIENT
  Age: 57 Year
  Sex: Male
  Weight: 77.18 kg

DRUGS (5)
  1. ANDROGEL [Suspect]
     Indication: BLOOD TESTOSTERONE DECREASED
     Dosage: 3 PUMPS DAILY
  2. MONTELUKAST SODIUM [Suspect]
     Indication: HYPERSENSITIVITY
     Dosage: SWITCHED TO GENERIC, 1/2 YEAR
  3. MULTIVITAMIN [Concomitant]
     Indication: PRODUCT USED FOR UNKNOWN INDICATION
  4. FISH OIL [Concomitant]
     Indication: PRODUCT USED FOR UNKNOWN INDICATION
  5. SINGULAIR [Concomitant]
     Indication: PRODUCT USED FOR UNKNOWN INDICATION

REACTIONS (10)
  - Skin discolouration [Not Recovered/Not Resolved]
  - Muscle tightness [Not Recovered/Not Resolved]
  - Rash [Not Recovered/Not Resolved]
  - Oedema mouth [Not Recovered/Not Resolved]
  - Palatal disorder [Not Recovered/Not Resolved]
  - Chest pain [Not Recovered/Not Resolved]
  - Snoring [Not Recovered/Not Resolved]
  - Respiratory arrest [Not Recovered/Not Resolved]
  - Dyspepsia [Not Recovered/Not Resolved]
  - Middle insomnia [Not Recovered/Not Resolved]
